FAERS Safety Report 23925296 (Version 1)
Quarter: 2024Q2

REPORT INFORMATION
  Report Type: Spontaneous
  Country: JP (occurrence: JP)
  Receive Date: 20240531
  Receipt Date: 20240531
  Transmission Date: 20240716
  Serious: Yes (Hospitalization, Other)
  Sender: FDA-Public Use
  Company Number: JP-GLANDPHARMA-JP-2024GLNLIT00286

PATIENT
  Age: 72 Year
  Sex: Female

DRUGS (4)
  1. AMIODARONE HYDROCHLORIDE [Suspect]
     Active Substance: AMIODARONE HYDROCHLORIDE
     Indication: Product used for unknown indication
     Route: 065
  2. AMIODARONE HYDROCHLORIDE [Suspect]
     Active Substance: AMIODARONE HYDROCHLORIDE
     Route: 065
  3. LEVETIRACETAM [Suspect]
     Active Substance: LEVETIRACETAM
     Indication: Seizure
     Route: 065
  4. CEFAZOLIN [Concomitant]
     Active Substance: CEFAZOLIN
     Route: 065

REACTIONS (5)
  - Hepatic encephalopathy [Recovering/Resolving]
  - Steatohepatitis [Recovering/Resolving]
  - Hyperammonaemia [Recovered/Resolved with Sequelae]
  - Urea cycle disorder [Unknown]
  - Drug-induced liver injury [Recovering/Resolving]
